FAERS Safety Report 10230865 (Version 1)
Quarter: 2014Q2

REPORT INFORMATION
  Report Type: Spontaneous
  Country: CA (occurrence: CA)
  Receive Date: 20140611
  Receipt Date: 20140611
  Transmission Date: 20141212
  Serious: Yes (Other)
  Sender: FDA-Public Use
  Company Number: CA-TEVA-487524USA

PATIENT
  Age: 54 Year
  Sex: Female

DRUGS (3)
  1. CARBAMAZEPINE [Suspect]
     Indication: CONVULSION
     Dosage: 800 MILLIGRAM DAILY; 300MG IN THE MORNING PLUS 200MG AT NOON PLUS 300MG AT BED TIME
     Route: 048
     Dates: start: 200904
  2. CEPHALEXIN [Concomitant]
     Indication: CELLULITIS
     Dosage: 125 MILLIGRAM DAILY;
     Route: 048
     Dates: start: 20140605
  3. FUSIDIN [Concomitant]
     Indication: CELLULITIS
     Route: 061

REACTIONS (1)
  - Cellulitis [Unknown]
